FAERS Safety Report 12200804 (Version 1)
Quarter: 2016Q1

REPORT INFORMATION
  Report Type: Spontaneous
  Country: US (occurrence: US)
  Receive Date: 20160322
  Receipt Date: 20160322
  Transmission Date: 20160526
  Serious: Yes (Death, Hospitalization)
  Sender: FDA-Public Use
  Company Number: US-LPDUSPRD-20160231

PATIENT
  Age: 13 Year
  Sex: Male

DRUGS (4)
  1. CYCLOSPORINE INJECTION, USP (866-10) [Suspect]
     Active Substance: CYCLOSPORINE
     Dosage: DOSE NOT PROVIDED
     Route: 065
  2. MYCOPHENYLATE MOFETIL [Suspect]
     Active Substance: MYCOPHENOLATE MOFETIL
     Dosage: DOSE NOT REPORTED
     Route: 065
  3. CYCLOPHOSPHAMIDE. [Suspect]
     Active Substance: CYCLOPHOSPHAMIDE
     Dosage: DOSE NOT REPORTED
     Route: 065
  4. FLUDARABINE [Suspect]
     Active Substance: FLUDARABINE PHOSPHATE
     Dosage: DOSE NOT REPORTED
     Route: 065

REACTIONS (7)
  - Dermatitis exfoliative [None]
  - Urine output decreased [None]
  - Hypotension [None]
  - Pleural effusion [None]
  - Viral myocarditis [Fatal]
  - Acute respiratory failure [None]
  - Pulmonary oedema [None]
